FAERS Safety Report 14929455 (Version 1)
Quarter: 2018Q2

REPORT INFORMATION
  Report Type: Spontaneous
  Country: US (occurrence: US)
  Receive Date: 20180504
  Receipt Date: 20180504
  Transmission Date: 20180711
  Serious: No
  Sender: FDA-Public Use
  Company Number: None

PATIENT
  Age: 30 Year
  Sex: Female

DRUGS (1)
  1. FONDAPARINUX 7.5MG/0.6ML MYLAN [Suspect]
     Active Substance: FONDAPARINUX
     Indication: BUDD-CHIARI SYNDROME
     Route: 058
     Dates: start: 20150603

REACTIONS (2)
  - Spinal disorder [None]
  - Haematoma [None]

NARRATIVE: CASE EVENT DATE: 20180402
